FAERS Safety Report 16363460 (Version 1)
Quarter: 2019Q2

REPORT INFORMATION
  Report Type: Spontaneous
  Country: GR (occurrence: GR)
  Receive Date: 20190528
  Receipt Date: 20190528
  Transmission Date: 20190711
  Serious: Yes (Other)
  Sender: FDA-Public Use
  Company Number: GR-MYLANLABS-2019M1048740

PATIENT
  Age: 31 Year
  Sex: Female
  Weight: 70 kg

DRUGS (9)
  1. METOCLOPRAMIDE. [Concomitant]
     Active Substance: METOCLOPRAMIDE
     Indication: GENERAL ANAESTHESIA
     Dosage: DOSAGE FORM: UNSPECIFIED
     Route: 042
  2. HYDRALAZINE [Concomitant]
     Active Substance: HYDRALAZINE HYDROCHLORIDE
     Dosage: DOSAGE FORM: UNSPECIFIED
     Route: 042
  3. REMIFENTANIL [Concomitant]
     Active Substance: REMIFENTANIL
     Indication: ANAESTHESIA
     Dosage: DOSAGE FORM: UNSPECIFIED
     Route: 065
  4. PENTOTHAL [Concomitant]
     Active Substance: THIOPENTAL SODIUM
     Indication: ANAESTHESIA
     Dosage: DOSAGE FORM: UNSPECIFIED
     Route: 065
  5. SODIUM CITRATE. [Concomitant]
     Active Substance: SODIUM CITRATE
     Indication: GENERAL ANAESTHESIA
     Dosage: 30ML, 0.3M
     Route: 065
  6. RANITIDINE. [Concomitant]
     Active Substance: RANITIDINE
     Dosage: DOSAGE FORM: UNSPECIFIED
     Route: 065
  7. MAGNESIUM SULFATE. [Concomitant]
     Active Substance: MAGNESIUM SULFATE
     Dosage: DOSAGE FORM: UNSPECIFIED
     Route: 065
  8. FENTANYL. [Suspect]
     Active Substance: FENTANYL
     Indication: PRODUCT USED FOR UNKNOWN INDICATION
     Dosage: DOSAGE FORM: UNSPECIFIED
     Route: 065
  9. SUCCINYLCHOLINE CHLORIDE. [Concomitant]
     Active Substance: SUCCINYLCHOLINE CHLORIDE
     Indication: ANAESTHESIA
     Dosage: DOSAGE FORM: UNSPECIFIED
     Route: 065

REACTIONS (4)
  - Premature labour [Recovered/Resolved]
  - Off label use [Unknown]
  - Exposure during pregnancy [Recovered/Resolved]
  - Product prescribing error [Unknown]
